FAERS Safety Report 10290228 (Version 1)
Quarter: 2014Q3

REPORT INFORMATION
  Report Type: Spontaneous
  Country: US (occurrence: None)
  Receive Date: 20140708
  Receipt Date: 20140708
  Transmission Date: 20150326
  Serious: Yes (Hospitalization)
  Sender: FDA-Public Use
  Company Number: 2417458

PATIENT
  Age: 54 Year
  Sex: Male

DRUGS (4)
  1. EPINEPHRINE. [Suspect]
     Active Substance: EPINEPHRINE
     Indication: NERVE BLOCK
  2. LISINOPRIL. [Concomitant]
     Active Substance: LISINOPRIL
  3. INSULIN [Concomitant]
     Active Substance: INSULIN NOS
  4. BUPIVACAINE [Concomitant]
     Active Substance: BUPIVACAINE

REACTIONS (15)
  - Blood pressure increased [None]
  - Mitral valve incompetence [None]
  - Dyspnoea [None]
  - Haemoptysis [None]
  - Rales [None]
  - Left ventricular dysfunction [None]
  - Overdose [None]
  - Drug administration error [None]
  - Supraventricular tachycardia [None]
  - Hypoxia [None]
  - Metabolic acidosis [None]
  - Heart rate increased [None]
  - Productive cough [None]
  - Troponin increased [None]
  - Respiratory distress [None]
